FAERS Safety Report 15420937 (Version 1)
Quarter: 2018Q3

REPORT INFORMATION
  Report Type: Spontaneous
  Country: US (occurrence: US)
  Receive Date: 20180924
  Receipt Date: 20180924
  Transmission Date: 20181010
  Serious: No
  Sender: FDA-Public Use
  Company Number: US-ALLERGAN-1771173US

PATIENT
  Sex: Female

DRUGS (5)
  1. SERTRALINE [Concomitant]
     Active Substance: SERTRALINE HYDROCHLORIDE
     Indication: HORMONE LEVEL ABNORMAL
     Dosage: 50 MG, QD
     Route: 048
  2. FENOFIBRATE. [Concomitant]
     Active Substance: FENOFIBRATE
     Indication: CHOLESTEROL ABSORPTION EFFICIENCY DECREASED
     Dosage: 160 MG, QD
     Route: 048
  3. LINZESS [Suspect]
     Active Substance: LINACLOTIDE
     Dosage: 145 ?G, QD
     Route: 065
  4. LINZESS [Suspect]
     Active Substance: LINACLOTIDE
     Indication: DISCOMFORT
     Dosage: 72 ?G, QD
     Route: 048
     Dates: start: 20171005, end: 20171207
  5. PANTOPRAZOLE [Concomitant]
     Active Substance: PANTOPRAZOLE
     Indication: GASTROOESOPHAGEAL REFLUX DISEASE
     Dosage: 20 MG, QD
     Route: 048

REACTIONS (3)
  - Off label use [Unknown]
  - Diarrhoea [Recovered/Resolved]
  - Vomiting [Recovered/Resolved]
